FAERS Safety Report 4830967-9 (Version None)
Quarter: 2005Q4

REPORT INFORMATION
  Report Type: 
  Country: None (occurrence: None)
  Receive Date: 20051114
  Receipt Date: 20051028
  Transmission Date: 20060501
  Serious: Yes (Hospitalization, Other)
  Sender: FDA-Public Use
  Company Number: 2005-01764

PATIENT
  Age: 71 Year
  Sex: Male
  Weight: 71 kg

DRUGS (10)
  1. VELCADE [Suspect]
     Indication: MULTIPLE MYELOMA
     Dosage: 2.50  MG, INTRAVENOUS
     Route: 042
     Dates: start: 20050517
  2. DOXIL [Suspect]
     Indication: MULTIPLE MYELOMA
     Dosage: 57.00 MG, INTRAVENOUS
     Route: 042
     Dates: start: 20050517
  3. ACENOCOUMAROL (ACENOCOUMAROL) [Concomitant]
  4. VITAMIN C (ASCORBIC ACID) [Concomitant]
  5. APD (PAMIDRONATE DISODIUM) [Concomitant]
  6. ZOFRAN [Concomitant]
  7. COZAAR PLUS (HYDROCHLOROTHIAZIDE, LOSARTAN POTASSIUM) [Concomitant]
  8. COZAAR [Concomitant]
  9. RYTMONORM (PROPAFENONE HYDROCHLORIDE) [Concomitant]
  10. XATRAL (ALFUZOSIN) [Concomitant]

REACTIONS (25)
  - ASTHENIA [None]
  - BLOOD CALCIUM DECREASED [None]
  - CAECITIS [None]
  - CARDIAC FAILURE [None]
  - CARDIOMEGALY [None]
  - DEHYDRATION [None]
  - DIARRHOEA [None]
  - DIZZINESS [None]
  - DRUG TOXICITY [None]
  - ECZEMA [None]
  - HAEMOGLOBIN DECREASED [None]
  - ILEUS [None]
  - INTERNATIONAL NORMALISED RATIO INCREASED [None]
  - NEUTROPHIL COUNT DECREASED [None]
  - PLATELET COUNT DECREASED [None]
  - PROTEIN TOTAL INCREASED [None]
  - PRURITUS [None]
  - PULMONARY EMBOLISM [None]
  - PYREXIA [None]
  - RASH [None]
  - RED BLOOD CELL SEDIMENTATION RATE INCREASED [None]
  - SCRATCH [None]
  - SKIN LESION [None]
  - TONGUE DRY [None]
  - WHITE BLOOD CELL COUNT DECREASED [None]
